FAERS Safety Report 25619515 (Version 1)
Quarter: 2025Q3

REPORT INFORMATION
  Report Type: Spontaneous
  Country: EU (occurrence: EU)
  Receive Date: 20250729
  Receipt Date: 20250729
  Transmission Date: 20251020
  Serious: Yes (Other)
  Sender: BOEHRINGER INGELHEIM
  Company Number: EU-BoehringerIngelheim-2025-BI-085522

PATIENT
  Age: 73 Year
  Sex: Male
  Weight: 87 kg

DRUGS (5)
  1. OFEV [Suspect]
     Active Substance: NINTEDANIB
     Indication: Idiopathic pulmonary fibrosis
     Dates: start: 2021
  2. OFEV [Suspect]
     Active Substance: NINTEDANIB
     Dates: start: 2021, end: 202507
  3. OMEPRAZOLE [Concomitant]
     Active Substance: OMEPRAZOLE
     Indication: Product used for unknown indication
  4. LOPERAMIDE [Concomitant]
     Active Substance: LOPERAMIDE
     Indication: Product used for unknown indication
  5. FLUTICASONE PROPIONATE\SALMETEROL XINAFOATE [Concomitant]
     Active Substance: FLUTICASONE PROPIONATE\SALMETEROL XINAFOATE
     Indication: Product used for unknown indication

REACTIONS (2)
  - Idiopathic pulmonary fibrosis [Not Recovered/Not Resolved]
  - Gastrointestinal disorder [Unknown]

NARRATIVE: CASE EVENT DATE: 20210101
